FAERS Safety Report 17282575 (Version 1)
Quarter: 2020Q1

REPORT INFORMATION
  Report Type: Spontaneous
  Country: ID (occurrence: ID)
  Receive Date: 20200117
  Receipt Date: 20200117
  Transmission Date: 20200409
  Serious: Yes (Other)
  Sender: FDA-Public Use
  Company Number: ID-ASTRAZENECA-2020SE06965

PATIENT
  Age: 600 Month
  Sex: Female

DRUGS (2)
  1. OSIMERTINIB. [Suspect]
     Active Substance: OSIMERTINIB
     Route: 048
     Dates: start: 20180112
  2. BONEVELL [Concomitant]

REACTIONS (3)
  - Pulmonary mass [Unknown]
  - Malignant neoplasm progression [Unknown]
  - Metastases to bone [Unknown]

NARRATIVE: CASE EVENT DATE: 201910
